FAERS Safety Report 24547005 (Version 1)
Quarter: 2024Q4

REPORT INFORMATION
  Report Type: Spontaneous
  Country: US (occurrence: US)
  Receive Date: 20241025
  Receipt Date: 20241025
  Transmission Date: 20250115
  Serious: No
  Sender: BOEHRINGER INGELHEIM
  Company Number: US-Komodo Health-a23aa000003spS2AAI

PATIENT
  Sex: Female

DRUGS (11)
  1. JARDIANCE [Suspect]
     Active Substance: EMPAGLIFLOZIN
     Indication: Cardiac disorder
     Dosage: FORM STRENGTH: 10 MILLIGRAM
  2. amoxiciilin [Concomitant]
     Indication: Cardiac disorder
  3. ASPIRIN [Concomitant]
     Active Substance: ASPIRIN
     Indication: Cardiac disorder
  4. ATORVASTATIN [Concomitant]
     Active Substance: ATORVASTATIN
     Indication: Cardiac disorder
  5. CARVEDILOL [Concomitant]
     Active Substance: CARVEDILOL
     Indication: Cardiac disorder
  6. ESZOPICLONE [Concomitant]
     Active Substance: ESZOPICLONE
     Indication: Cardiac disorder
  7. FERROUS SULFATE [Concomitant]
     Active Substance: FERROUS SULFATE
     Indication: Cardiac disorder
  8. FOLIC ACID [Concomitant]
     Active Substance: FOLIC ACID
     Indication: Cardiac disorder
  9. FUROSEMIDE [Concomitant]
     Active Substance: FUROSEMIDE
     Indication: Cardiac disorder
  10. SPIRONOLACTONE [Concomitant]
     Active Substance: SPIRONOLACTONE
     Indication: Cardiac disorder
  11. WARFARIN [Concomitant]
     Active Substance: WARFARIN
     Indication: Cardiac disorder

REACTIONS (2)
  - Dyspnoea [Recovering/Resolving]
  - Gait disturbance [Recovered/Resolved]
